FAERS Safety Report 13052303 (Version 1)
Quarter: 2016Q4

REPORT INFORMATION
  Report Type: Other
  Country: NL (occurrence: NL)
  Receive Date: 20161221
  Receipt Date: 20161221
  Transmission Date: 20170207
  Serious: No
  Sender: FDA-Public Use
  Company Number: NL-LEADING PHARMA-1061136

PATIENT
  Age: 22 Year

DRUGS (1)
  1. IMIPRAMINE HYDROCHLORIDE. [Suspect]
     Active Substance: IMIPRAMINE HYDROCHLORIDE

REACTIONS (2)
  - Cardiac disorder [Recovered/Resolved]
  - Overdose [None]
